FAERS Safety Report 8547554 (Version 4)
Quarter: 2013Q1

REPORT INFORMATION
  Report Type: Spontaneous
  Country: BR (occurrence: BR)
  Receive Date: 20120504
  Receipt Date: 20130301
  Transmission Date: 20140127
  Serious: Yes (Hospitalization)
  Sender: FDA-Public Use
  Company Number: BR-GENZYME-FABR-1002483

PATIENT
  Sex: Male
  Weight: 90 kg

DRUGS (3)
  1. FABRAZYME [Suspect]
     Indication: FABRY^S DISEASE
     Dosage: 1 MG/KG, Q2W
     Route: 042
     Dates: start: 200607
  2. CORTICOSTEROIDS [Concomitant]
     Indication: PAIN
     Route: 065
  3. DEXAMETHASONE [Concomitant]
     Indication: PRODUCT USED FOR UNKNOWN INDICATION

REACTIONS (7)
  - Cardiomyopathy [Not Recovered/Not Resolved]
  - Renal impairment [Recovered/Resolved]
  - Cardiac failure [Recovered/Resolved with Sequelae]
  - Adrenocortical insufficiency acute [Recovered/Resolved with Sequelae]
  - Furuncle [Not Recovered/Not Resolved]
  - Atrial fibrillation [Unknown]
  - Pyrexia [Recovered/Resolved]
